FAERS Safety Report 24231911 (Version 2)
Quarter: 2025Q1

REPORT INFORMATION
  Report Type: Report from Study
  Country: US (occurrence: US)
  Receive Date: 20240821
  Receipt Date: 20250320
  Transmission Date: 20250409
  Serious: Yes (Other)
  Sender: TAKEDA
  Company Number: US-TAKEDA-2023TUS085173

PATIENT
  Sex: Female

DRUGS (2)
  1. HUMAN IMMUNOGLOBULIN G [Suspect]
     Active Substance: HUMAN IMMUNOGLOBULIN G
     Indication: Immunodeficiency common variable
  2. HUMAN IMMUNOGLOBULIN G [Suspect]
     Active Substance: HUMAN IMMUNOGLOBULIN G
     Indication: Primary immunodeficiency syndrome
     Dosage: 40 GRAM, MONTHLY

REACTIONS (8)
  - Pulmonary thrombosis [Unknown]
  - Thrombosis [Unknown]
  - COVID-19 [Unknown]
  - Memory impairment [Unknown]
  - Arthritis [Unknown]
  - Sinusitis [Unknown]
  - Arthralgia [Unknown]
  - Fatigue [Unknown]
